FAERS Safety Report 9202105 (Version 1)
Quarter: 2013Q1

REPORT INFORMATION
  Report Type: Spontaneous
  Country: IT (occurrence: None)
  Receive Date: 20130328
  Receipt Date: 20130328
  Transmission Date: 20140127
  Serious: Yes (Hospitalization)
  Sender: FDA-Public Use
  Company Number: 2013AP003887

PATIENT
  Age: 69 Year
  Sex: Male

DRUGS (1)
  1. LEVOFLOXACIN (LEVOFLOXACIN) [Suspect]
     Indication: BRONCHITIS
     Route: 048
     Dates: start: 20130118, end: 20130122

REACTIONS (5)
  - Arthralgia [None]
  - Pain in extremity [None]
  - Tendon rupture [None]
  - Tendon pain [None]
  - Musculoskeletal pain [None]
